FAERS Safety Report 7773078-5 (Version None)
Quarter: 2011Q3

REPORT INFORMATION
  Report Type: 
  Country: None (occurrence: None)
  Receive Date: 20110922
  Receipt Date: 20110916
  Transmission Date: 20111222
  Serious: Yes (Death, Other)
  Sender: FDA-Public Use
  Company Number: TN-SANOFI-AVENTIS-2011SA060652

PATIENT
  Age: 74 Year
  Sex: Male

DRUGS (7)
  1. GLUCOPHAGE [Concomitant]
     Dates: end: 20110724
  2. ASPIRIN [Concomitant]
     Dates: end: 20110724
  3. ATORVASTATIN CALCIUM [Concomitant]
     Dates: end: 20110724
  4. INSULIN [Concomitant]
     Dates: end: 20110724
  5. PLAVIX [Suspect]
     Indication: ACUTE CORONARY SYNDROME
     Route: 048
     Dates: start: 20101014, end: 20110724
  6. PLAVIX [Suspect]
     Indication: STENT PLACEMENT
     Route: 048
     Dates: start: 20101014, end: 20110724
  7. HYPOTEN [Concomitant]
     Dates: end: 20110724

REACTIONS (2)
  - CHEST PAIN [None]
  - SUDDEN DEATH [None]
